FAERS Safety Report 6174976-9 (Version None)
Quarter: 2009Q2

REPORT INFORMATION
  Report Type: 
  Country: None (occurrence: None)
  Receive Date: 20090424
  Receipt Date: 20090220
  Transmission Date: 20091009
  Serious: No
  Sender: FDA-Public Use
  Company Number: SPV1-2009-00273

PATIENT
  Age: 48 Year
  Sex: Female
  Weight: 49.9 kg

DRUGS (4)
  1. VYVANSE [Suspect]
     Indication: ATTENTION DEFICIT/HYPERACTIVITY DISORDER
     Dosage: 30 MG, 1X/DAY:QD, ORAL ; 60 MG, 1X/DAY:QD, ORAL
     Route: 048
     Dates: end: 20090101
  2. VYVANSE [Suspect]
     Indication: ATTENTION DEFICIT/HYPERACTIVITY DISORDER
     Dosage: 30 MG, 1X/DAY:QD, ORAL ; 60 MG, 1X/DAY:QD, ORAL
     Route: 048
     Dates: start: 20090101
  3. ZOLOFT [Concomitant]
  4. TRAZODONE HCL [Concomitant]

REACTIONS (1)
  - DYSPNOEA [None]
